FAERS Safety Report 7677482-5 (Version None)
Quarter: 2011Q3

REPORT INFORMATION
  Report Type: 
  Country: None (occurrence: None)
  Receive Date: 20110811
  Receipt Date: 20110728
  Transmission Date: 20111222
  Serious: Yes (Other)
  Sender: FDA-Public Use
  Company Number: AU-JNJFOC-20110804908

PATIENT

DRUGS (12)
  1. CYCLOPHOSPHAMIDE [Suspect]
     Dosage: CYCLE 1
     Route: 042
  2. VINCRISTINE [Suspect]
     Indication: LYMPHOMA
     Dosage: CYCLE 3
     Route: 042
  3. CYCLOPHOSPHAMIDE [Suspect]
     Dosage: CYCLE 3
     Route: 042
  4. PREDNISOLONE [Suspect]
     Indication: LYMPHOMA
     Dosage: CYCLE 1
     Route: 042
  5. PREDNISOLONE [Suspect]
     Dosage: CYCLE 3
     Route: 042
  6. DOXORUBICIN HYDROCHLORIDE [Suspect]
     Indication: LYMPHOMA
     Dosage: CYCLE 1
     Route: 042
  7. DOXORUBICIN HYDROCHLORIDE [Suspect]
     Dosage: CYCLE 3
     Route: 042
  8. VINCRISTINE [Suspect]
     Dosage: CYCLE 1
     Route: 042
  9. DOXORUBICIN HYDROCHLORIDE [Suspect]
     Dosage: CYCLE 2
     Route: 042
  10. VINCRISTINE [Suspect]
     Dosage: CYCLE 2
     Route: 042
  11. PREDNISOLONE [Suspect]
     Dosage: CYCLE 2
     Route: 042
  12. CYCLOPHOSPHAMIDE [Suspect]
     Indication: LYMPHOMA
     Dosage: CYCLE 2
     Route: 042

REACTIONS (2)
  - OFF LABEL USE [None]
  - MYOCARDIAL INFARCTION [None]
